FAERS Safety Report 21279896 (Version 1)
Quarter: 2022Q3

REPORT INFORMATION
  Report Type: Spontaneous
  Country: US (occurrence: None)
  Receive Date: 20220831
  Receipt Date: 20220831
  Transmission Date: 20221026
  Serious: No
  Sender: FDA-Public Use
  Company Number: None

PATIENT
  Age: 54 Year
  Sex: Female

DRUGS (1)
  1. TREMFYA [Suspect]
     Active Substance: GUSELKUMAB
     Indication: Polyarthritis
     Dosage: OTHER FREQUENCY : EVERY 8 WEEKS;?
     Route: 058
     Dates: start: 202105

REACTIONS (4)
  - Device issue [None]
  - Injection site haemorrhage [None]
  - Device leakage [None]
  - Drug dose omission by device [None]

NARRATIVE: CASE EVENT DATE: 20220828
